FAERS Safety Report 7217773-5 (Version None)
Quarter: 2011Q1

REPORT INFORMATION
  Report Type: 
  Country: None (occurrence: None)
  Receive Date: 20110110
  Receipt Date: 20101228
  Transmission Date: 20110831
  Serious: Yes (Hospitalization, Other)
  Sender: FDA-Public Use
  Company Number: PHHY2010US84946

PATIENT
  Sex: Female

DRUGS (1)
  1. RECLAST [Suspect]
     Dosage: UNK
     Dates: start: 20100422

REACTIONS (20)
  - CHEST PAIN [None]
  - PAIN [None]
  - INCOHERENT [None]
  - NAUSEA [None]
  - THROAT TIGHTNESS [None]
  - VISION BLURRED [None]
  - CHILLS [None]
  - BLOOD PRESSURE INCREASED [None]
  - FATIGUE [None]
  - DIZZINESS [None]
  - ABASIA [None]
  - VOMITING [None]
  - SWOLLEN TONGUE [None]
  - VISUAL FIELD DEFECT [None]
  - MYALGIA [None]
  - ASTHENIA [None]
  - ANURIA [None]
  - MUSCULAR WEAKNESS [None]
  - DYSPNOEA [None]
  - GAIT DISTURBANCE [None]
